FAERS Safety Report 16938316 (Version 2)
Quarter: 2019Q4

REPORT INFORMATION
  Report Type: Report from Study
  Country: NL (occurrence: NL)
  Receive Date: 20191019
  Receipt Date: 20191127
  Transmission Date: 20200122
  Serious: Yes (Hospitalization)
  Sender: FDA-Public Use
  Company Number: NVSC2019NL008732

PATIENT
  Sex: Female

DRUGS (2)
  1. SANDOSTATIN LAR DEPOT [Suspect]
     Active Substance: OCTREOTIDE ACETATE
     Indication: GASTROINTESTINAL HAEMORRHAGE
  2. SANDOSTATIN LAR DEPOT [Suspect]
     Active Substance: OCTREOTIDE ACETATE
     Indication: HEREDITARY HAEMORRHAGIC TELANGIECTASIA
     Dosage: 20 MG/2ML, QMO
     Route: 030

REACTIONS (2)
  - Hepatic function abnormal [Not Recovered/Not Resolved]
  - Product use in unapproved indication [Unknown]
